FAERS Safety Report 22248859 (Version 1)
Quarter: 2023Q2

REPORT INFORMATION
  Report Type: Spontaneous
  Country: US (occurrence: US)
  Receive Date: 20230425
  Receipt Date: 20230425
  Transmission Date: 20230721
  Serious: Yes (Other)
  Sender: FDA-Public Use
  Company Number: US-drreddys-LIT/USA/23/0164116

PATIENT
  Age: 68 Year
  Sex: Female

DRUGS (8)
  1. DECITABINE [Suspect]
     Active Substance: DECITABINE
     Indication: Acute myeloid leukaemia
  2. COLCHICINE [Suspect]
     Active Substance: COLCHICINE
     Indication: Chest pain
  3. VENETOCLAX [Suspect]
     Active Substance: VENETOCLAX
     Indication: Acute myeloid leukaemia
  4. REMDESIVIR [Concomitant]
     Active Substance: REMDESIVIR
     Indication: COVID-19
     Dosage: 2 DOSES
  5. SOTROVIMAB [Concomitant]
     Active Substance: SOTROVIMAB
     Indication: COVID-19
     Dosage: 2 DOSES
  6. CYTARABINE [Concomitant]
     Active Substance: CYTARABINE
     Indication: Prophylactic chemotherapy
     Dosage: IV CYTARABINE 170 MG/DAY FOR 7 DAYS
     Route: 042
  7. CYTARABINE [Concomitant]
     Active Substance: CYTARABINE
     Dosage: ON DAY 28 OF CHEMOTHERAPY
     Route: 037
  8. IDARUBICIN [Concomitant]
     Active Substance: IDARUBICIN
     Indication: Prophylactic chemotherapy
     Dosage: IV IDARUBICIN 20 MG/DAY FOR 3 DAYS
     Route: 042

REACTIONS (5)
  - Leukaemia cutis [Recovered/Resolved]
  - Atrial fibrillation [Unknown]
  - Pneumonia bacterial [Unknown]
  - Ventricular tachycardia [Unknown]
  - Product use in unapproved indication [Unknown]
